FAERS Safety Report 8793740 (Version 1)
Quarter: 2012Q4

REPORT INFORMATION
  Report Type: 
  Country: US (occurrence: US)
  Receive Date: 20120917
  Receipt Date: 20120917
  Transmission Date: 20130627
  Serious: Yes (Other)
  Sender: FDA-Public Use
  Company Number: US-ASTRAZENECA-2012SE70470

PATIENT
  Age: 63 Year
  Sex: Female

DRUGS (5)
  1. NEXIUM [Suspect]
     Route: 048
     Dates: start: 200203, end: 201002
  2. NEXIUM [Suspect]
     Route: 048
  3. PRILOSEC [Suspect]
     Route: 048
     Dates: start: 1995
  4. PRILOSEC [Suspect]
     Route: 048
     Dates: end: 2002
  5. PRILOSEC [Suspect]
     Route: 048
     Dates: start: 200202, end: 200203

REACTIONS (14)
  - Systemic lupus erythematosus [Unknown]
  - Tachycardia [Unknown]
  - Fibromyalgia [Unknown]
  - Post polio syndrome [Unknown]
  - Dysphagia [Unknown]
  - Oesophageal hypomotility [Unknown]
  - Gastrooesophageal reflux disease [Unknown]
  - Hiatus hernia [Unknown]
  - Chest pain [Unknown]
  - Conversion disorder [Unknown]
  - Gastritis erosive [Unknown]
  - Abdominal pain upper [Unknown]
  - Vomiting [Unknown]
  - Drug ineffective [Unknown]
